FAERS Safety Report 5496526-2 (Version None)
Quarter: 2007Q4

REPORT INFORMATION
  Report Type: 
  Country: None (occurrence: None)
  Receive Date: 20071025
  Receipt Date: 20070611
  Transmission Date: 20080405
  Serious: No
  Sender: FDA-Public Use
  Company Number: A0655055A

PATIENT
  Age: 64 Year
  Sex: Female

DRUGS (9)
  1. ADVAIR DISKUS 100/50 [Suspect]
     Indication: ASTHMA
     Route: 055
  2. COZAAR [Concomitant]
  3. LIPITOR [Concomitant]
  4. EVISTA [Concomitant]
  5. NASAL CREAM [Concomitant]
  6. CLARITIN-D [Concomitant]
  7. DARVOCET [Concomitant]
  8. PROZAC [Concomitant]
  9. CELEBREX [Concomitant]

REACTIONS (2)
  - HUNGER [None]
  - OEDEMA PERIPHERAL [None]
